FAERS Safety Report 13528179 (Version 2)
Quarter: 2017Q2

REPORT INFORMATION
  Report Type: Spontaneous
  Country: US (occurrence: US)
  Receive Date: 20170509
  Receipt Date: 20170519
  Transmission Date: 20170830
  Serious: Yes (Death, Hospitalization)
  Sender: FDA-Public Use
  Company Number: US-JNJFOC-20170507451

PATIENT
  Age: 81 Year
  Sex: Male

DRUGS (3)
  1. XARELTO [Suspect]
     Active Substance: RIVAROXABAN
     Indication: ATRIAL FIBRILLATION
     Dosage: VARIED DOSES OF 15MG AND 20 MG
     Route: 048
     Dates: start: 20120620, end: 20150529
  2. XARELTO [Suspect]
     Active Substance: RIVAROXABAN
     Indication: CEREBROVASCULAR ACCIDENT PROPHYLAXIS
     Dosage: VARIED DOSES OF 15MG AND 20 MG
     Route: 048
     Dates: start: 20120620, end: 20150529
  3. XARELTO [Suspect]
     Active Substance: RIVAROXABAN
     Indication: THROMBOSIS PROPHYLAXIS
     Dosage: VARIED DOSES OF 15MG AND 20 MG
     Route: 048
     Dates: start: 20120620, end: 20150529

REACTIONS (6)
  - Renal haemorrhage [Unknown]
  - Mouth haemorrhage [Unknown]
  - Haematuria [Unknown]
  - Hyperlipidaemia [Fatal]
  - Hypertension [Fatal]
  - Pneumonia [Fatal]

NARRATIVE: CASE EVENT DATE: 20150529
